FAERS Safety Report 13398974 (Version 2)
Quarter: 2018Q1

REPORT INFORMATION
  Report Type: Report from Study
  Country: None (occurrence: CA)
  Receive Date: 20170404
  Receipt Date: 20180204
  Transmission Date: 20180508
  Serious: Yes (Hospitalization, Other)
  Sender: FDA-Public Use
  Company Number: CA-ABBVIE-17K-028-1928664-00

PATIENT
  Age: 22 Year
  Sex: Male

DRUGS (2)
  1. HUMIRA [Suspect]
     Active Substance: ADALIMUMAB
     Indication: ANKYLOSING SPONDYLITIS
     Route: 058
     Dates: start: 2015
  2. HUMIRA [Suspect]
     Active Substance: ADALIMUMAB
     Indication: CROHN^S DISEASE
     Route: 058
     Dates: start: 20150410, end: 2015

REACTIONS (14)
  - Urinary bladder abscess [Not Recovered/Not Resolved]
  - Intestinal haemorrhage [Unknown]
  - Musculoskeletal stiffness [Unknown]
  - Crohn^s disease [Not Recovered/Not Resolved]
  - Malaise [Unknown]
  - Sinusitis [Recovered/Resolved]
  - Hypophagia [Unknown]
  - Enterovesical fistula [Not Recovered/Not Resolved]
  - Intestinal perforation [Unknown]
  - Nasopharyngitis [Recovered/Resolved]
  - Intestinal resection [Unknown]
  - Vomiting [Unknown]
  - Rectourethral fistula [Unknown]
  - Nasopharyngitis [Recovered/Resolved]

NARRATIVE: CASE EVENT DATE: 2015
